FAERS Safety Report 7597300-3 (Version None)
Quarter: 2011Q3

REPORT INFORMATION
  Report Type: 
  Country: None (occurrence: None)
  Receive Date: 20110708
  Receipt Date: 20110406
  Transmission Date: 20111222
  Serious: No
  Sender: FDA-Public Use
  Company Number: US-GLAXOSMITHKLINE-A0921658A

PATIENT
  Age: 8 Year
  Sex: Male

DRUGS (3)
  1. MULTI-VITAMIN [Concomitant]
  2. FLUORIDE [Concomitant]
     Route: 048
  3. FLOVENT [Suspect]
     Indication: ASTHMA
     Dosage: 220 PER DAY
     Route: 055
     Dates: start: 20090101

REACTIONS (1)
  - PARAESTHESIA [None]
